FAERS Safety Report 7124858-0 (Version None)
Quarter: 2010Q4

REPORT INFORMATION
  Report Type: 
  Country: None (occurrence: None)
  Receive Date: 20101129
  Receipt Date: 20101115
  Transmission Date: 20110411
  Serious: No
  Sender: FDA-Public Use
  Company Number: US-JNJFOC-20091101071

PATIENT
  Sex: Male
  Weight: 55.34 kg

DRUGS (5)
  1. DURAGESIC-100 [Suspect]
     Indication: NECK PAIN
     Dosage: NDC#: 50458-034-05
     Route: 062
     Dates: start: 19980101, end: 20091001
  2. DURAGESIC-100 [Suspect]
     Indication: BACK PAIN
     Dosage: NDC#: 50458-034-05
     Route: 062
     Dates: start: 19980101, end: 20091001
  3. FENTANYL CITRATE [Suspect]
     Indication: PAIN
     Route: 062
  4. FIORINAL NOS [Concomitant]
     Indication: PAIN
     Route: 065
  5. SOMA [Concomitant]
     Indication: PAIN
     Route: 048

REACTIONS (5)
  - DEHYDRATION [None]
  - DRUG DOSE OMISSION [None]
  - DRUG INEFFECTIVE [None]
  - PAIN [None]
  - WEIGHT INCREASED [None]
